FAERS Safety Report 14430656 (Version 1)
Quarter: 2018Q1

REPORT INFORMATION
  Report Type: Spontaneous
  Country: US (occurrence: US)
  Receive Date: 20180123
  Receipt Date: 20180123
  Transmission Date: 20180509
  Serious: No
  Sender: FDA-Public Use
  Company Number: None

PATIENT
  Age: 44 Year
  Sex: Female
  Weight: 77.85 kg

DRUGS (10)
  1. MIRENA [Concomitant]
     Active Substance: LEVONORGESTREL
  2. ALBUTEROL. [Concomitant]
     Active Substance: ALBUTEROL
  3. MOMETASONE FUROATE NASAL SPRAY [Suspect]
     Active Substance: MOMETASONE FUROATE
     Indication: RHINITIS ALLERGIC
     Dosage: ?          QUANTITY:2 SPRAY(S);?
     Route: 055
  4. NASONEX [Concomitant]
     Active Substance: MOMETASONE FUROATE
  5. FISH OIL [Concomitant]
     Active Substance: FISH OIL
  6. ADVAIR HFA [Concomitant]
     Active Substance: FLUTICASONE PROPIONATE\SALMETEROL XINAFOATE
  7. CHLONAZAPAM [Concomitant]
  8. ADVIL LIQUI-GEL [Concomitant]
  9. WELLBUTRIN XL [Concomitant]
     Active Substance: BUPROPION HYDROCHLORIDE
  10. MACUHEALTH [Concomitant]

REACTIONS (4)
  - Product substitution issue [None]
  - Disease complication [None]
  - Drug ineffective [None]
  - Epistaxis [None]

NARRATIVE: CASE EVENT DATE: 20170126
